FAERS Safety Report 23140512 (Version 1)
Quarter: 2023Q4

REPORT INFORMATION
  Report Type: Report from Study
  Country: CH (occurrence: CH)
  Receive Date: 20231102
  Receipt Date: 20231102
  Transmission Date: 20240109
  Serious: Yes (Hospitalization)
  Sender: FDA-Public Use
  Company Number: CH-ABBVIE-5443177

PATIENT
  Sex: Female

DRUGS (5)
  1. CARBIDOPA\LEVODOPA [Suspect]
     Active Substance: CARBIDOPA\LEVODOPA
     Indication: Parkinson^s disease
     Dosage: MD: 2.0 ML, CRD: 2.4 ML/H, ED: 1.0 ML?FREQUENCY TEXT: 24H THERAPY
     Route: 050
     Dates: start: 20230222, end: 20230331
  2. CARBIDOPA\LEVODOPA [Suspect]
     Active Substance: CARBIDOPA\LEVODOPA
     Dosage: MD: 2.0 ML, CRD: 2.4 ML/H, ED: 1.0 ML , CRN: 1.2 ML/H?FREQUENCY TEXT: 24H THERAPY, LAST ADMIN DAT...
     Route: 050
     Dates: start: 202304
  3. CARBIDOPA\LEVODOPA [Suspect]
     Active Substance: CARBIDOPA\LEVODOPA
     Dosage: MD: 2.0 ML, CRD: 2.4 ML/H, ED: 1.0 ML , CRN: 1.0 ML/H?FREQUENCY TEXT: 24H THERAPY
     Route: 050
     Dates: start: 202303, end: 20230406
  4. CARBIDOPA\LEVODOPA [Suspect]
     Active Substance: CARBIDOPA\LEVODOPA
     Dosage: FREQUENCY TEXT: 24H THERAPY
     Route: 050
     Dates: start: 20220221, end: 20220221
  5. CARBIDOPA\LEVODOPA [Suspect]
     Active Substance: CARBIDOPA\LEVODOPA
     Route: 050
     Dates: start: 20231030, end: 20231030

REACTIONS (2)
  - COVID-19 [Not Recovered/Not Resolved]
  - Underdose [Recovered/Resolved]

NARRATIVE: CASE EVENT DATE: 20230101
